FAERS Safety Report 6090914-1 (Version None)
Quarter: 2009Q1

REPORT INFORMATION
  Report Type: 
  Country: None (occurrence: None)
  Receive Date: 20090220
  Receipt Date: 20090204
  Transmission Date: 20090719
  Serious: Yes (Other)
  Sender: FDA-Public Use
  Company Number: 2009S1002000

PATIENT
  Sex: Male

DRUGS (5)
  1. AZATHIOPRINE [Suspect]
     Indication: CROHN'S DISEASE
     Dosage: 150 MG; ORAL
     Route: 048
     Dates: start: 20080806, end: 20090115
  2. ADCAL-D3 (LEKOVIT CA) [Concomitant]
  3. BUDESONIDE [Concomitant]
  4. AMLODIPINE MALEATE (AMLODIPINE MALEATE) [Concomitant]
  5. PENTASA [Concomitant]

REACTIONS (2)
  - ANAEMIA [None]
  - NEUTROPENIA [None]
